FAERS Safety Report 9184661 (Version 1)
Quarter: 2013Q1

REPORT INFORMATION
  Report Type: Spontaneous
  Country: ES (occurrence: ES)
  Receive Date: 20130324
  Receipt Date: 20130324
  Transmission Date: 20140127
  Serious: Yes (Hospitalization)
  Sender: FDA-Public Use
  Company Number: ES-ELI_LILLY_AND_COMPANY-ES201303007696

PATIENT
  Age: 69 Year
  Sex: Female
  Weight: 40 kg

DRUGS (4)
  1. FORSTEO [Suspect]
     Indication: OSTEOPOROSIS
     Dosage: 20 UG, UNKNOWN
     Route: 058
     Dates: start: 200904
  2. NATECAL D [Concomitant]
     Dosage: UNK, UNKNOWN
     Route: 065
  3. SYMBICORT FORTE [Concomitant]
     Dosage: UNK, UNKNOWN
     Route: 065
  4. MORPHINE [Concomitant]
     Indication: PAIN
     Dosage: UNK, UNKNOWN
     Route: 065

REACTIONS (6)
  - Asthma [Recovered/Resolved]
  - Asthma [Unknown]
  - Intestinal polyp haemorrhage [Recovered/Resolved]
  - Tachycardia [Unknown]
  - Haematoma [Unknown]
  - Dizziness [Unknown]
